FAERS Safety Report 5518955-0 (Version None)
Quarter: 2007Q4

REPORT INFORMATION
  Report Type: 
  Country: None (occurrence: None)
  Receive Date: 20071114
  Receipt Date: 20071114
  Transmission Date: 20080405
  Serious: Yes (Life-Threatening, Hospitalization, Disabling, Other)
  Sender: FDA-Public Use
  Company Number: None

PATIENT
  Age: 39 Year
  Sex: Male
  Weight: 86.1834 kg

DRUGS (2)
  1. ARTANE [Suspect]
     Indication: LOSS OF CONSCIOUSNESS
  2. ARTANE [Suspect]
     Indication: PROPHYLAXIS

REACTIONS (5)
  - HYPERTENSIVE CRISIS [None]
  - NO THERAPEUTIC RESPONSE [None]
  - ONYCHOMADESIS [None]
  - STEVENS-JOHNSON SYNDROME [None]
  - STREPTOCOCCAL INFECTION [None]
